FAERS Safety Report 6557723-8 (Version None)
Quarter: 2010Q1

REPORT INFORMATION
  Report Type: 
  Country: None (occurrence: None)
  Receive Date: 20100129
  Receipt Date: 20100121
  Transmission Date: 20100710
  Serious: Yes (Death)
  Sender: FDA-Public Use
  Company Number: BE-SANOFI-AVENTIS-2010SA005104

PATIENT
  Sex: Male

DRUGS (3)
  1. CLOPIDOGREL BISULFATE [Suspect]
     Route: 048
     Dates: start: 20040101
  2. LIPITOR [Concomitant]
     Indication: DRUG USE FOR UNKNOWN INDICATION
  3. EZETROL [Concomitant]
     Indication: DRUG USE FOR UNKNOWN INDICATION

REACTIONS (1)
  - CEREBROVASCULAR ACCIDENT [None]
